FAERS Safety Report 10147106 (Version 1)
Quarter: 2014Q2

REPORT INFORMATION
  Report Type: Spontaneous
  Country: US (occurrence: US)
  Receive Date: 20140501
  Receipt Date: 20140501
  Transmission Date: 20141212
  Serious: Yes (Other)
  Sender: FDA-Public Use
  Company Number: PHHY2014US049576

PATIENT
  Age: 34 Year
  Sex: Male

DRUGS (6)
  1. VANCOMYCIN [Suspect]
     Indication: POUCHITIS
     Dosage: 125 MG, QID
     Route: 048
  2. VANCOMYCIN [Suspect]
     Dosage: 125 MG, QID
     Route: 048
  3. VANCOMYCIN [Suspect]
     Dosage: 125 MG, QID
     Route: 048
  4. VANCOMYCIN [Suspect]
     Dosage: 125 MG, QID
     Route: 048
  5. FIDAXOMICIN [Suspect]
     Indication: POUCHITIS
     Dosage: 200 MG, BID
     Route: 048
  6. RIFAXIMIN [Suspect]
     Indication: POUCHITIS

REACTIONS (9)
  - Clostridium difficile infection [Recovered/Resolved]
  - Drug resistance [Recovered/Resolved]
  - Pouchitis [Recovered/Resolved]
  - Diarrhoea [Recovered/Resolved]
  - Mucosal ulceration [Recovered/Resolved]
  - Rectal tenesmus [Recovered/Resolved]
  - Abdominal pain [Recovered/Resolved]
  - Erythema [Recovered/Resolved]
  - Gastrointestinal oedema [Recovered/Resolved]
